FAERS Safety Report 23827165 (Version 1)
Quarter: 2024Q2

REPORT INFORMATION
  Report Type: Spontaneous
  Country: FR (occurrence: None)
  Receive Date: 20240507
  Receipt Date: 20240507
  Transmission Date: 20240716
  Serious: Yes (Hospitalization)
  Sender: FDA-Public Use
  Company Number: 2024A104406

PATIENT
  Age: 50 Year
  Sex: Female
  Weight: 89 kg

DRUGS (17)
  1. LYNPARZA [Suspect]
     Active Substance: OLAPARIB
     Indication: Ovarian cancer
     Route: 048
     Dates: start: 20231006
  2. BEVACIZUMAB [Suspect]
     Active Substance: BEVACIZUMAB
     Indication: Ovarian cancer
     Dosage: 1380.0MG UNKNOWN
     Route: 040
     Dates: start: 20231020, end: 20231020
  3. BEVACIZUMAB [Suspect]
     Active Substance: BEVACIZUMAB
     Indication: Ovarian cancer
     Dosage: 1380.0MG UNKNOWN
     Route: 040
     Dates: start: 20231110, end: 20231110
  4. BEVACIZUMAB [Suspect]
     Active Substance: BEVACIZUMAB
     Indication: Ovarian cancer
     Dosage: 1380.0MG UNKNOWN
     Route: 040
     Dates: start: 20230929, end: 20230929
  5. BEVACIZUMAB [Suspect]
     Active Substance: BEVACIZUMAB
     Indication: Ovarian cancer
     Dosage: 1380.0MG UNKNOWN
     Route: 040
     Dates: start: 20240123, end: 20240123
  6. BEVACIZUMAB [Suspect]
     Active Substance: BEVACIZUMAB
     Indication: Ovarian cancer
     Dosage: 1380.0MG UNKNOWN
     Route: 040
     Dates: start: 20240305, end: 20240305
  7. BEVACIZUMAB [Suspect]
     Active Substance: BEVACIZUMAB
     Indication: Ovarian cancer
     Dosage: 1380.0MG UNKNOWN
     Route: 040
     Dates: start: 20240326, end: 20240326
  8. SPASFON [Concomitant]
  9. LANSOPRAZOLE [Concomitant]
     Active Substance: LANSOPRAZOLE
  10. LOVENOX [Concomitant]
     Active Substance: ENOXAPARIN SODIUM
  11. PERFALGAN [Concomitant]
     Active Substance: ACETAMINOPHEN
  12. DEXTROSE\POTASSIUM CHLORIDE\SODIUM CHLORIDE [Concomitant]
     Active Substance: DEXTROSE\POTASSIUM CHLORIDE\SODIUM CHLORIDE
  13. DAFALGAN [Concomitant]
     Active Substance: ACETAMINOPHEN
  14. SODIUM CHLORIDE [Concomitant]
     Active Substance: SODIUM CHLORIDE
  15. EUPANTOL [Concomitant]
     Active Substance: PANTOPRAZOLE SODIUM
  16. INNOHEP [Concomitant]
     Active Substance: TINZAPARIN SODIUM
  17. DOLIPRANE [Concomitant]
     Active Substance: ACETAMINOPHEN

REACTIONS (1)
  - Abdominal sepsis [Not Recovered/Not Resolved]

NARRATIVE: CASE EVENT DATE: 20240408
